FAERS Safety Report 12585339 (Version 1)
Quarter: 2016Q3

REPORT INFORMATION
  Report Type: Report from Study
  Country: BR (occurrence: BR)
  Receive Date: 20160724
  Receipt Date: 20160724
  Transmission Date: 20161109
  Serious: Yes (Other)
  Sender: FDA-Public Use
  Company Number: PHHY2016BR100925

PATIENT
  Sex: Female
  Weight: 42 kg

DRUGS (2)
  1. EXJADE [Suspect]
     Active Substance: DEFERASIROX
     Indication: SICKLE CELL ANAEMIA
     Dosage: 3 DF, UNK (3 TABLETS OF 250 MG)
     Route: 065
  2. EXJADE [Suspect]
     Active Substance: DEFERASIROX
     Dosage: 25 MG/KG, QD (2 TABLETS OF 500 MG DAILY)
     Route: 065
     Dates: start: 201607

REACTIONS (2)
  - Delayed puberty [Unknown]
  - Growth retardation [Recovering/Resolving]
